FAERS Safety Report 25260557 (Version 1)
Quarter: 2025Q2

REPORT INFORMATION
  Report Type: Spontaneous
  Country: PL (occurrence: PL)
  Receive Date: 20250501
  Receipt Date: 20250501
  Transmission Date: 20250716
  Serious: Yes (Other)
  Sender: NOVO NORDISK
  Company Number: PL-NOVOPROD-1392164

PATIENT
  Age: 71 Year
  Sex: Male
  Weight: 98 kg

DRUGS (7)
  1. OZEMPIC [Suspect]
     Active Substance: SEMAGLUTIDE
     Indication: Blood triglycerides increased
     Dosage: 1 MG, QW
     Route: 058
     Dates: start: 202306
  2. OZEMPIC [Suspect]
     Active Substance: SEMAGLUTIDE
     Indication: Type 2 diabetes mellitus
     Dosage: 0.5 MG, QW
     Route: 058
     Dates: start: 202305
  3. GENTAMICIN [Concomitant]
     Active Substance: GENTAMICIN
     Indication: Product used for unknown indication
     Dates: start: 20241002
  4. AMOXICILLIN\CLAVULANATE POTASSIUM [Concomitant]
     Active Substance: AMOXICILLIN\CLAVULANATE POTASSIUM
     Indication: Product used for unknown indication
     Dates: start: 20241113
  5. NADROPARIN CALCIUM [Concomitant]
     Active Substance: NADROPARIN CALCIUM
     Indication: Product used for unknown indication
  6. ASPIRIN [Concomitant]
     Active Substance: ASPIRIN
     Indication: Product used for unknown indication
  7. CETIX [CETIRIZINE HYDROCHLORIDE] [Concomitant]
     Dates: start: 20250210

REACTIONS (8)
  - Cataract [Recovered/Resolved]
  - Prostate cancer [Recovered/Resolved]
  - Bacteriuria [Recovered/Resolved]
  - Klebsiella infection [Recovered/Resolved]
  - Urinary tract infection enterococcal [Recovered/Resolved]
  - Pneumococcal infection [Unknown]
  - Injection site pain [Unknown]
  - Dysgeusia [Unknown]

NARRATIVE: CASE EVENT DATE: 20231101
